FAERS Safety Report 8495137-4 (Version None)
Quarter: 2012Q3

REPORT INFORMATION
  Report Type: 
  Country: None (occurrence: None)
  Receive Date: 20120702
  Receipt Date: 20120702
  Transmission Date: 20120928
  Serious: Yes (Hospitalization, Congenital Anomaly)
  Sender: FDA-Public Use
  Company Number: None

PATIENT
  Age: 36 Year
  Sex: Female
  Weight: 118.3888 kg

DRUGS (2)
  1. HYDROXYCHLOROQUINE SULFATE [Suspect]
     Indication: SYSTEMIC LUPUS ERYTHEMATOSUS
     Dosage: 200 MG 2 TABLETS PO
     Route: 048
     Dates: start: 20020214, end: 20120629
  2. METHYLPREDNISOLONE ACETATE 80MG/ML SUSPENSION [Suspect]
     Indication: SYSTEMIC LUPUS ERYTHEMATOSUS
     Dosage: 60 MG IM
     Route: 030
     Dates: start: 20060701, end: 20120629

REACTIONS (1)
  - CAESAREAN SECTION [None]
